FAERS Safety Report 22943768 (Version 2)
Quarter: 2023Q4

REPORT INFORMATION
  Report Type: Spontaneous
  Country: US (occurrence: US)
  Receive Date: 20230914
  Receipt Date: 20231009
  Transmission Date: 20240110
  Serious: No
  Sender: FDA-Public Use
  Company Number: US-BAYER-2023A120150

PATIENT
  Age: 17 Year
  Sex: Male

DRUGS (2)
  1. KOVALTRY [Suspect]
     Active Substance: ANTIHEMOPHILIC FACTOR, HUMAN RECOMBINANT
     Indication: Arthralgia
     Dosage: 6500 IU,PROPHYLAXIS 1-3 TIMES
     Route: 042
  2. KOVALTRY [Suspect]
     Active Substance: ANTIHEMOPHILIC FACTOR, HUMAN RECOMBINANT
     Indication: Haemorrhage

REACTIONS (2)
  - Off label use [None]
  - Pain [None]

NARRATIVE: CASE EVENT DATE: 20230824
